FAERS Safety Report 4474565-8 (Version None)
Quarter: 2004Q3

REPORT INFORMATION
  Report Type: 
  Country: None (occurrence: None)
  Receive Date: 20040923
  Receipt Date: 20040722
  Transmission Date: 20050211
  Serious: No
  Sender: FDA-Public Use
  Company Number: USA040771941

PATIENT
  Age: 60 Year
  Sex: Male

DRUGS (5)
  1. FORTEO [Suspect]
     Indication: OSTEOPOROSIS
     Dosage: 20 UG DAY
     Dates: start: 20040615
  2. NEXIUM [Concomitant]
  3. CARAFATE [Concomitant]
  4. SYNTHROID [Concomitant]
  5. ZOCOR [Concomitant]

REACTIONS (1)
  - DISTURBANCE IN ATTENTION [None]
